FAERS Safety Report 8264464-8 (Version None)
Quarter: 2012Q2

REPORT INFORMATION
  Report Type: 
  Country: None (occurrence: None)
  Receive Date: 20120406
  Receipt Date: 20120326
  Transmission Date: 20120825
  Serious: Yes (Other)
  Sender: FDA-Public Use
  Company Number: DE-JNJFOC-20111111496

PATIENT
  Sex: Male

DRUGS (8)
  1. XARELTO [Suspect]
     Indication: HIP ARTHROPLASTY
     Route: 048
     Dates: start: 20111104, end: 20111109
  2. RAMIPRIL [Concomitant]
     Dates: start: 20111104, end: 20111118
  3. METOCLOPRAMIDE [Concomitant]
     Dates: start: 20111110, end: 20111118
  4. VALORON [Concomitant]
     Dates: start: 20111111, end: 20111118
  5. XARELTO [Suspect]
     Indication: THROMBOSIS PROPHYLAXIS
     Route: 048
     Dates: start: 20111104, end: 20111109
  6. INDOMETHACIN [Concomitant]
     Dates: start: 20111104, end: 20111109
  7. TORSEMIDE [Concomitant]
     Dates: start: 20111109, end: 20111119
  8. PANTOPRAZOLE [Concomitant]
     Dates: start: 20111104, end: 20111114

REACTIONS (2)
  - HEPATIC ENZYME INCREASED [None]
  - HEPATIC LESION [None]
